FAERS Safety Report 13383240 (Version 1)
Quarter: 2017Q1

REPORT INFORMATION
  Report Type: Spontaneous
  Country: SE (occurrence: SE)
  Receive Date: 20170329
  Receipt Date: 20170329
  Transmission Date: 20170429
  Serious: Yes (Hospitalization)
  Sender: FDA-Public Use
  Company Number: SE-PFIZER INC-2017128919

PATIENT
  Age: 73 Year
  Sex: Male

DRUGS (15)
  1. LEUPRORELIN [Concomitant]
     Active Substance: LEUPROLIDE ACETATE
  2. BETAPRED [Concomitant]
     Active Substance: BETAMETHASONE SODIUM PHOSPHATE
  3. ALENDRONATE [Concomitant]
     Active Substance: ALENDRONATE SODIUM
  4. CIPRALEX [Concomitant]
     Active Substance: ESCITALOPRAM OXALATE
  5. PRIMPERAN [Concomitant]
     Active Substance: METOCLOPRAMIDE HYDROCHLORIDE
  6. SELOKEN /00376902/ [Concomitant]
     Active Substance: METOPROLOL TARTRATE
  7. ALVEDON [Concomitant]
     Active Substance: ACETAMINOPHEN
  8. FURIX [Concomitant]
     Active Substance: FUROSEMIDE
  9. DOXYFERM /00055701/ [Concomitant]
     Active Substance: DOXYCYCLINE
  10. DOLCONTIN [Suspect]
     Active Substance: MORPHINE
     Indication: BACK PAIN
     Dosage: 40 MG, DAILY
     Route: 048
     Dates: start: 20140829
  11. CAMPRAL [Concomitant]
     Active Substance: ACAMPROSATE CALCIUM
  12. MORPHINE SULFATE. [Suspect]
     Active Substance: MORPHINE SULFATE
     Indication: BACK PAIN
     Dosage: UNK UNK, AS NEEDED
     Route: 048
  13. ENALAPRIL [Concomitant]
     Active Substance: ENALAPRIL
  14. PREDNISOLONE. [Concomitant]
     Active Substance: PREDNISOLONE
  15. SOBRIL [Concomitant]
     Active Substance: OXAZEPAM

REACTIONS (2)
  - Altered state of consciousness [Recovered/Resolved]
  - Accidental overdose [Recovered/Resolved]

NARRATIVE: CASE EVENT DATE: 20141018
